FAERS Safety Report 24788006 (Version 1)
Quarter: 2024Q4

REPORT INFORMATION
  Report Type: Spontaneous
  Country: KR (occurrence: KR)
  Receive Date: 20241230
  Receipt Date: 20241230
  Transmission Date: 20250115
  Serious: Yes (Hospitalization)
  Sender: SAMSUNG BIOEPIS
  Company Number: KR-SAMSUNG BIOEPIS-SB-2024-37866

PATIENT
  Age: 75 Year
  Sex: Female
  Weight: 44 kg

DRUGS (40)
  1. TRASTUZUMAB [Suspect]
     Active Substance: TRASTUZUMAB
     Indication: Cholangiocarcinoma
     Route: 042
     Dates: start: 20240319
  2. NIVOLUMAB [Suspect]
     Active Substance: NIVOLUMAB
     Indication: Cholangiocarcinoma
     Route: 042
     Dates: start: 20240319
  3. GEMCITABINE [Suspect]
     Active Substance: GEMCITABINE
     Indication: Cholangiocarcinoma
     Dosage: D1, D8;
     Route: 042
     Dates: start: 20240316, end: 20240920
  4. CISPLATIN [Suspect]
     Active Substance: CISPLATIN
     Indication: Cholangiocarcinoma
     Dosage: D1, D8;
     Route: 042
     Dates: start: 20240319, end: 20240920
  5. METOCLOPRAMIDE HYDROCHLORIDE [Concomitant]
     Active Substance: METOCLOPRAMIDE HYDROCHLORIDE
     Indication: Prophylaxis
     Dosage: PRN;
     Dates: start: 20240319
  6. LOPERAMIDE HYDROCHLORIDE [Concomitant]
     Active Substance: LOPERAMIDE HYDROCHLORIDE
     Indication: Prophylaxis
     Dosage: PRN;
     Dates: start: 20240319
  7. MAGMIL S [Concomitant]
     Indication: Prophylaxis
     Dates: start: 20240319
  8. TANTUM [Concomitant]
     Active Substance: BENZYDAMINE HYDROCHLORIDE
     Indication: Prophylaxis
     Dosage: PRN;
     Dates: start: 20240319
  9. SODIUM BICARBONATE [Concomitant]
     Active Substance: SODIUM BICARBONATE
     Indication: Prophylaxis
     Dosage: PRN;
     Dates: start: 20240319
  10. AKYNZEO [Concomitant]
     Indication: Prophylaxis
     Dosage: PRN;
     Dates: start: 20240319
  11. Daewon Dexamethasone [Concomitant]
     Indication: Prophylaxis
     Dosage: PRN;
     Dates: start: 20240319
  12. NEUPOGEN [Concomitant]
     Active Substance: FILGRASTIM
     Indication: Product used for unknown indication
     Dosage: 300?G/0.7ML; ONCE;
     Dates: start: 20240326
  13. NEUPOGEN [Concomitant]
     Active Substance: FILGRASTIM
     Dosage: 300?G/0.7ML; ONCE;
     Dates: start: 20240407
  14. NEUPOGEN [Concomitant]
     Active Substance: FILGRASTIM
     Dosage: 300?G/0.7ML; ONCE;
     Dates: start: 20240408
  15. NEUPOGEN [Concomitant]
     Active Substance: FILGRASTIM
     Dosage: 300?G/0.7ML; ONCE;
     Dates: start: 20240409
  16. NEUPOGEN [Concomitant]
     Active Substance: FILGRASTIM
     Dosage: 300?G/0.7ML; ONCE;
     Dates: start: 20240415
  17. NEUPOGEN [Concomitant]
     Active Substance: FILGRASTIM
     Dosage: 300?G/0.7ML; ONCE;
     Dates: start: 20240624
  18. Dulackhan [Concomitant]
     Indication: Prophylaxis
     Dosage: 15ML (PACK); PRN;
     Dates: start: 20240326
  19. NORVASC [Concomitant]
     Active Substance: AMLODIPINE BESYLATE
     Indication: Hypertension
     Dates: start: 2018
  20. OLMESARTAN MEDOXOMIL [Concomitant]
     Active Substance: OLMESARTAN MEDOXOMIL
     Indication: Hypertension
     Dates: start: 2018
  21. XANAX [Concomitant]
     Active Substance: ALPRAZOLAM
     Indication: Insomnia
     Dates: start: 2022
  22. TRAMADOL HYDROCHLORIDE [Concomitant]
     Active Substance: TRAMADOL HYDROCHLORIDE
     Indication: Prophylaxis
     Dosage: 50MG/ML;
     Dates: start: 20240408
  23. PROPACETAMOL HYDROCHLORIDE [Concomitant]
     Active Substance: PROPACETAMOL HYDROCHLORIDE
     Indication: Prophylaxis
     Dates: start: 20240408
  24. Boryung Maxipime [Concomitant]
     Indication: Prophylaxis
     Dates: start: 20240409
  25. Citopcin [Concomitant]
     Indication: Prophylaxis
     Dates: start: 20240411
  26. AUGMENTIN [Concomitant]
     Active Substance: AMOXICILLIN\CLAVULANATE POTASSIUM
     Indication: Prophylaxis
     Dates: start: 20240411
  27. FILGRASTIM [Concomitant]
     Active Substance: FILGRASTIM
     Indication: Product used for unknown indication
     Dosage: ONCE;
     Dates: start: 20240422
  28. FILGRASTIM [Concomitant]
     Active Substance: FILGRASTIM
     Dosage: ONCE;
     Dates: start: 20240604
  29. FILGRASTIM [Concomitant]
     Active Substance: FILGRASTIM
     Dosage: ONCE;
     Dates: start: 20240729
  30. FILGRASTIM [Concomitant]
     Active Substance: FILGRASTIM
     Dosage: ONCE;
     Dates: start: 20240920
  31. HERBALS [Concomitant]
     Active Substance: HERBALS
     Indication: Prophylaxis
     Dates: start: 20240508
  32. MEGACE F [Concomitant]
     Indication: Prophylaxis
     Dosage: PRN;
     Dates: start: 20240508
  33. PENIRAMIN [Concomitant]
     Indication: Prophylaxis
     Dosage: ONCE;
     Dates: start: 20240708
  34. PENIRAMIN [Concomitant]
     Dosage: ONCE;
     Dates: start: 20240717
  35. NEULAPEG [Concomitant]
     Indication: Product used for unknown indication
     Dosage: ONCE;
     Dates: start: 20240710
  36. ENTELON [Concomitant]
     Indication: Prophylaxis
     Dates: start: 20240717
  37. ALROXI [Concomitant]
     Indication: Prophylaxis
     Dosage: 5ML; PRN;
     Dates: start: 20240819
  38. EMEND [Concomitant]
     Active Substance: APREPITANT
     Indication: Prophylaxis
     Dosage: PRN;
     Route: 042
     Dates: start: 20240819
  39. AMITRIPTYLINE HYDROCHLORIDE [Concomitant]
     Active Substance: AMITRIPTYLINE HYDROCHLORIDE
     Indication: Prophylaxis
     Dosage: PRN;
     Dates: start: 20240911
  40. Daewon Morphine Sulfate Hydrate [Concomitant]
     Indication: Product used for unknown indication
     Dosage: 5ML; ONCE;
     Dates: start: 20241204

REACTIONS (2)
  - Dysphagia [Recovered/Resolved]
  - Off label use [Unknown]

NARRATIVE: CASE EVENT DATE: 20241206
